FAERS Safety Report 22629981 (Version 1)
Quarter: 2023Q2

REPORT INFORMATION
  Report Type: Spontaneous
  Country: IN (occurrence: IN)
  Receive Date: 20230622
  Receipt Date: 20230622
  Transmission Date: 20230721
  Serious: Yes (Hospitalization)
  Sender: FDA-Public Use
  Company Number: IN-MYLANLABS-2023M1066191

PATIENT
  Age: 60 Year
  Sex: Male

DRUGS (1)
  1. PEMETREXED [Suspect]
     Active Substance: PEMETREXED
     Indication: Non-small cell lung cancer stage IV
     Dosage: 870 MILLIGRAM, CYCLE
     Route: 065

REACTIONS (1)
  - Dacryostenosis acquired [Recovered/Resolved]
